APPROVED DRUG PRODUCT: PREZISTA
Active Ingredient: DARUNAVIR
Strength: 100MG/ML
Dosage Form/Route: SUSPENSION;ORAL
Application: N202895 | Product #001
Applicant: JANSSEN PRODUCTS LP
Approved: Dec 16, 2011 | RLD: Yes | RS: Yes | Type: RX

PATENTS:
Patent 7700645 | Expires: Dec 26, 2026
Patent 7700645*PED | Expires: Jun 26, 2027